FAERS Safety Report 12429145 (Version 1)
Quarter: 2016Q2

REPORT INFORMATION
  Report Type: Report from Study
  Country: US (occurrence: US)
  Receive Date: 20160602
  Receipt Date: 20160602
  Transmission Date: 20160815
  Serious: Yes (Other)
  Sender: FDA-Public Use
  Company Number: US-GILEAD-2016-0216456

PATIENT
  Age: 74 Year
  Sex: Female

DRUGS (2)
  1. RANOLAZINE [Suspect]
     Active Substance: RANOLAZINE
     Dosage: 1000 MG, UNK
     Route: 048
     Dates: start: 201605
  2. RANOLAZINE [Suspect]
     Active Substance: RANOLAZINE
     Indication: ANGINA PECTORIS
     Dosage: 500 MG, UNK
     Route: 048
     Dates: end: 201605

REACTIONS (8)
  - Cardiac failure congestive [Unknown]
  - Amnesia [Unknown]
  - Headache [Unknown]
  - Back pain [Unknown]
  - Unevaluable event [Unknown]
  - Gait disturbance [Unknown]
  - Malaise [Unknown]
  - Arthritis [Unknown]
